FAERS Safety Report 9868409 (Version 2)
Quarter: 2014Q1

REPORT INFORMATION
  Report Type: Spontaneous
  Country: US (occurrence: US)
  Receive Date: 20140204
  Receipt Date: 20140218
  Transmission Date: 20141002
  Serious: No
  Sender: FDA-Public Use
  Company Number: US-009507513-1402USA000757

PATIENT
  Sex: 0

DRUGS (10)
  1. REBETOL [Suspect]
     Indication: HEPATITIS C
     Dosage: 7 MG/KG, BID
     Route: 048
  2. REBETOL [Suspect]
     Dosage: 14 MG/KG, BID
     Route: 048
  3. PEGINTRON [Suspect]
     Indication: HEPATITIS C
     Dosage: 0.75 MICROGRAM PER KILOGRAM, QW
     Route: 058
  4. PEGINTRON [Suspect]
     Dosage: 1.5 MICROGRAM PER KILOGRAM, QW
     Route: 058
  5. PEGINTERFERON ALFA-2A [Suspect]
     Indication: HEPATITIS C
     Dosage: 90 MICROGRAM, QW
     Route: 058
  6. PEGINTERFERON ALFA-2A [Suspect]
     Dosage: 180 MICROGRAM, QW
     Route: 058
  7. TACROLIMUS [Concomitant]
  8. MYCOPHENOLATE SODIUM [Concomitant]
  9. CYCLOSPORINE [Concomitant]
  10. AZATHIOPRINE [Concomitant]

REACTIONS (1)
  - Malaise [Unknown]
